FAERS Safety Report 21439797 (Version 2)
Quarter: 2022Q4

REPORT INFORMATION
  Report Type: Report from Study
  Country: CH (occurrence: CH)
  Receive Date: 20221011
  Receipt Date: 20221024
  Transmission Date: 20230113
  Serious: Yes (Hospitalization, Other)
  Sender: FDA-Public Use
  Company Number: CH-BAYER-2022A138650

PATIENT
  Age: 39 Year
  Sex: Female
  Weight: 69 kg

DRUGS (1)
  1. KYLEENA [Suspect]
     Active Substance: LEVONORGESTREL
     Dosage: 17.5?G/DAY
     Route: 015
     Dates: start: 20190920

REACTIONS (4)
  - Ectopic pregnancy with contraceptive device [Recovered/Resolved]
  - Haemoperitoneum [None]
  - Ruptured ectopic pregnancy [None]
  - Drug ineffective [None]

NARRATIVE: CASE EVENT DATE: 20220908
